FAERS Safety Report 15135266 (Version 1)
Quarter: 2018Q3

REPORT INFORMATION
  Report Type: Report from Study
  Country: US (occurrence: US)
  Receive Date: 20180712
  Receipt Date: 20180712
  Transmission Date: 20181010
  Serious: Yes (Hospitalization)
  Sender: FDA-Public Use
  Company Number: US-ADAMAS PHARMA, LLC-2018ADA01334

PATIENT
  Sex: Female

DRUGS (17)
  1. ANTIFUNGAL CREAM [Concomitant]
     Active Substance: MICONAZOLE NITRATE
  2. CLONAZEPAM. [Concomitant]
     Active Substance: CLONAZEPAM
  3. LEVEMIR [Concomitant]
     Active Substance: INSULIN DETEMIR
  4. LOPERAMIDE [Concomitant]
     Active Substance: LOPERAMIDE
  5. ATIVAN [Concomitant]
     Active Substance: LORAZEPAM
  6. GUAIFENESIN. [Concomitant]
     Active Substance: GUAIFENESIN
  7. MAGNESIUM OXIDE. [Concomitant]
     Active Substance: MAGNESIUM OXIDE
  8. BUPROPION ER [Concomitant]
     Active Substance: BUPROPION
  9. SENNA [Concomitant]
     Active Substance: SENNA LEAF\SENNOSIDES\SENNOSIDES A AND B
  10. VITAMIN D3 [Concomitant]
     Active Substance: CHOLECALCIFEROL
  11. DULCOLAX NOS [Concomitant]
     Active Substance: BISACODYL OR DOCUSATE SODIUM
  12. GOCOVRI [Suspect]
     Active Substance: AMANTADINE
     Indication: DYSKINESIA
     Dosage: 137 MG, 1X/DAY AT BEDTIME
     Route: 048
     Dates: start: 20180223
  13. MUSCLE RUB CREAM [Concomitant]
     Active Substance: MENTHOL\METHYL SALICYLATE
  14. NAMENDA [Concomitant]
     Active Substance: MEMANTINE HYDROCHLORIDE
  15. SINEMET CR [Concomitant]
     Active Substance: CARBIDOPA\LEVODOPA
  16. SYNTHROID [Concomitant]
     Active Substance: LEVOTHYROXINE SODIUM
  17. TYLENOL [Concomitant]
     Active Substance: ACETAMINOPHEN

REACTIONS (3)
  - Drug dose omission [Unknown]
  - Urinary tract infection [Unknown]
  - Dehydration [Unknown]

NARRATIVE: CASE EVENT DATE: 2018
